FAERS Safety Report 8857921 (Version 1)
Quarter: 2012Q4

REPORT INFORMATION
  Report Type: 
  Country: US (occurrence: US)
  Receive Date: 20121024
  Receipt Date: 20121024
  Transmission Date: 20130627
  Serious: No
  Sender: FDA-Public Use
  Company Number: US-AMGEN-USASP2012003321

PATIENT
  Sex: Female
  Weight: 53.97 kg

DRUGS (8)
  1. ENBREL [Suspect]
     Indication: PRODUCT USED FOR UNKNOWN INDICATION
     Dosage: 50 mg, qwk
     Route: 058
  2. METHOTREXATE [Concomitant]
     Dosage: 2.5 mg, UNK
  3. MECLIZINE                          /00072801/ [Concomitant]
     Dosage: 12.5 mg, UNK
  4. VITAMIN D /00107901/ [Concomitant]
  5. CALCIUM [Concomitant]
     Dosage: 500 mg, UNK
  6. FOLIC ACID [Concomitant]
     Dosage: 20 mg, UNK
  7. OMEGA 3                            /01334101/ [Concomitant]
     Dosage: 1000 mg, UNK
  8. METFORMIN [Concomitant]
     Dosage: 500 mg, UNK

REACTIONS (2)
  - Injection site erythema [Unknown]
  - Injection site swelling [Unknown]
